FAERS Safety Report 11787304 (Version 2)
Quarter: 2015Q4

REPORT INFORMATION
  Report Type: Spontaneous
  Country: JP (occurrence: JP)
  Receive Date: 20151130
  Receipt Date: 20151216
  Transmission Date: 20160305
  Serious: No
  Sender: FDA-Public Use
  Company Number: JP-ELI_LILLY_AND_COMPANY-JP201511001710

PATIENT
  Age: 55 Year
  Sex: Male
  Weight: 54.8 kg

DRUGS (2)
  1. PACLITAXEL. [Suspect]
     Active Substance: PACLITAXEL
     Indication: GASTRIC CANCER RECURRENT
     Dosage: 130 MG, DAY1, DAY8, DAY15, PER 28 DAYS
     Route: 042
     Dates: start: 20150713
  2. CYRAMZA [Suspect]
     Active Substance: RAMUCIRUMAB
     Indication: GASTRIC CANCER RECURRENT
     Dosage: 400 MG, DAY1, DAY15, PER 28 DAYS
     Route: 042
     Dates: start: 20150713

REACTIONS (2)
  - Sputum retention [Unknown]
  - Interstitial lung disease [Recovering/Resolving]

NARRATIVE: CASE EVENT DATE: 20150918
